FAERS Safety Report 18001819 (Version 2)
Quarter: 2020Q3

REPORT INFORMATION
  Report Type: Report from Study
  Country: BR (occurrence: BR)
  Receive Date: 20200709
  Receipt Date: 20200824
  Transmission Date: 20201103
  Serious: Yes (Death, Hospitalization, Disabling)
  Sender: FDA-Public Use
  Company Number: NVSC2020BR190662

PATIENT
  Sex: Female

DRUGS (1)
  1. EXELON [Suspect]
     Active Substance: RIVASTIGMINE TARTRATE
     Indication: DEMENTIA ALZHEIMER^S TYPE
     Dosage: 1 DF, QD (A PATCH PER DAY)
     Route: 065
     Dates: end: 20200818

REACTIONS (4)
  - Lung neoplasm malignant [Unknown]
  - Dementia [Fatal]
  - Cardiac arrest [Fatal]
  - Gait inability [Unknown]
